FAERS Safety Report 11966222 (Version 3)
Quarter: 2016Q1

REPORT INFORMATION
  Report Type: Spontaneous
  Country: ES (occurrence: ES)
  Receive Date: 20160127
  Receipt Date: 20160301
  Transmission Date: 20160526
  Serious: Yes (Other)
  Sender: FDA-Public Use
  Company Number: ES-JNJFOC-20160115580

PATIENT

DRUGS (2)
  1. EVITHROM [Suspect]
     Active Substance: THROMBIN HUMAN
     Indication: HAEMOSTASIS
     Route: 061
     Dates: start: 20151124, end: 20151124
  2. LOCAL HEMOSTATICS [Concomitant]
     Indication: HAEMOSTASIS
     Route: 061
     Dates: start: 20151124, end: 20151124

REACTIONS (1)
  - Seizure [Recovered/Resolved]

NARRATIVE: CASE EVENT DATE: 20151124
